FAERS Safety Report 6029695-6 (Version None)
Quarter: 2009Q1

REPORT INFORMATION
  Report Type: 
  Country: None (occurrence: None)
  Receive Date: 20090107
  Receipt Date: 20081229
  Transmission Date: 20090719
  Serious: Yes (Disabling, Other)
  Sender: FDA-Public Use
  Company Number: PHEH2008US11436

PATIENT
  Sex: Female

DRUGS (5)
  1. DIOVAN HCT [Suspect]
     Dosage: UNK
  2. DIOVAN [Suspect]
     Dosage: 80 MG, UNK
  3. DIOVAN [Suspect]
     Dosage: 160 MG, UNK
  4. NORVASC [Suspect]
     Dosage: UNK, UNK
  5. SODIUM [Suspect]
     Dosage: UNK, UNK

REACTIONS (6)
  - BACK DISORDER [None]
  - BLOOD PRESSURE INCREASED [None]
  - DISABILITY [None]
  - DRUG INEFFECTIVE [None]
  - HYPERSENSITIVITY [None]
  - PAIN IN EXTREMITY [None]
